FAERS Safety Report 4522452-9 (Version None)
Quarter: 2004Q4

REPORT INFORMATION
  Report Type: 
  Country: None (occurrence: None)
  Receive Date: 20041207
  Receipt Date: 20041130
  Transmission Date: 20050328
  Serious: Yes (Other)
  Sender: FDA-Public Use
  Company Number: 200411133BVD

PATIENT
  Sex: Male

DRUGS (4)
  1. AVELOX [Suspect]
     Indication: SEPSIS
     Dosage: 400 MG, QD, INTRAVENOUS
     Route: 042
  2. AVELOX [Suspect]
     Indication: SINUSITIS
     Dosage: 400 MG, QD, INTRAVENOUS
     Route: 042
  3. ACC LONG [Concomitant]
  4. ROXIGRUEN [Concomitant]

REACTIONS (1)
  - VISUAL DISTURBANCE [None]
